FAERS Safety Report 4962728-4 (Version None)
Quarter: 2006Q1

REPORT INFORMATION
  Report Type: 
  Country: None (occurrence: None)
  Receive Date: 20060201
  Receipt Date: 20051202
  Transmission Date: 20060701
  Serious: No
  Sender: FDA-Public Use
  Company Number: 2005PV005301

PATIENT
  Age: 53 Year
  Sex: Male
  Weight: 115.6672 kg

DRUGS (9)
  1. BYETTA [Suspect]
     Indication: DIABETES MELLITUS NON-INSULIN-DEPENDENT
     Dosage: SEE IMAGE
     Route: 058
     Dates: start: 20051130, end: 20051130
  2. BYETTA [Suspect]
     Indication: DIABETES MELLITUS NON-INSULIN-DEPENDENT
     Dosage: SEE IMAGE
     Route: 058
     Dates: start: 20051201
  3. NOVOLOG [Concomitant]
  4. AMARYL [Concomitant]
  5. NITROGLYCERIN [Concomitant]
  6. PLAVIX [Concomitant]
  7. BLOOD PRESSURE MED [Concomitant]
  8. LANTUS [Concomitant]
  9. GLUCOPHAGE [Concomitant]

REACTIONS (3)
  - BLOOD GLUCOSE INCREASED [None]
  - FEELING ABNORMAL [None]
  - PALLOR [None]
